FAERS Safety Report 25316383 (Version 1)
Quarter: 2025Q2

REPORT INFORMATION
  Report Type: Spontaneous
  Country: NL (occurrence: NL)
  Receive Date: 20250515
  Receipt Date: 20250515
  Transmission Date: 20250716
  Serious: Yes (Life-Threatening)
  Sender: ACCORD
  Company Number: None

PATIENT
  Age: 74 Year
  Sex: Female
  Weight: 64.2 kg

DRUGS (3)
  1. METOPROLOL [Suspect]
     Active Substance: METOPROLOL
     Indication: Cardiac failure
     Dosage: STRENGTH: 50 MG, 1X PER DAY 1 PIECE
     Dates: start: 20250324
  2. DIGOXIN [Suspect]
     Active Substance: DIGOXIN
     Indication: Cardiac failure
     Dosage: STRENGTH: 0.125 MG, 1 X PER DAY 1 PIECE
     Dates: start: 20250324
  3. COTRIMOXAZOLE [Suspect]
     Active Substance: SULFAMETHOXAZOLE\TRIMETHOPRIM
     Indication: Erysipelas
     Dosage: STRENGTH: 160/800 MG, 960 TABLET, 2 X PER DAY 1 PIECE
     Dates: start: 20250320, end: 20250323

REACTIONS (2)
  - Bradycardia [Unknown]
  - Cardiogenic shock [Unknown]
